FAERS Safety Report 16538688 (Version 1)
Quarter: 2019Q3

REPORT INFORMATION
  Report Type: Spontaneous
  Country: US (occurrence: US)
  Receive Date: 20190708
  Receipt Date: 20190708
  Transmission Date: 20191004
  Serious: No
  Sender: FDA-Public Use
  Company Number: US-TEVA-2019-US-1071982

PATIENT
  Sex: Female

DRUGS (1)
  1. PIOGLITAZONE TABLETS, USP [Suspect]
     Active Substance: PIOGLITAZONE
     Indication: LICHEN PLANOPILARIS
     Dosage: TOOK 1 TAB
     Dates: start: 20190628

REACTIONS (1)
  - Oral discomfort [Not Recovered/Not Resolved]
